FAERS Safety Report 8205768-4 (Version None)
Quarter: 2012Q1

REPORT INFORMATION
  Report Type: 
  Country: None (occurrence: None)
  Receive Date: 20120313
  Receipt Date: 20120308
  Transmission Date: 20120608
  Serious: Yes (Other)
  Sender: FDA-Public Use
  Company Number: JP-PFIZER INC-2012053077

PATIENT
  Age: 80 Year
  Sex: Male

DRUGS (6)
  1. ASPIRIN [Concomitant]
     Dosage: UNK
     Dates: start: 20120225
  2. FLENIED [Concomitant]
     Dosage: UNK
     Dates: start: 20120225
  3. LYRICA [Suspect]
     Dosage: 75 MG, 2X/DAY
     Route: 048
     Dates: start: 20120225, end: 20120226
  4. MICARDIS [Concomitant]
     Dosage: UNK
     Dates: start: 20120225
  5. JANUVIA [Concomitant]
     Dosage: UNK
     Dates: start: 20120225
  6. LAMISIL [Concomitant]
     Dosage: UNK

REACTIONS (1)
  - MYOCLONIC EPILEPSY [None]
